FAERS Safety Report 15630781 (Version 3)
Quarter: 2019Q1

REPORT INFORMATION
  Report Type: Report from Study
  Country: DE (occurrence: DE)
  Receive Date: 20181119
  Receipt Date: 20190315
  Transmission Date: 20190417
  Serious: No
  Sender: FDA-Public Use
  Company Number: DE-ROCHE-2215136

PATIENT
  Age: 47 Year
  Sex: Male

DRUGS (4)
  1. FAMPYRA [Suspect]
     Active Substance: DALFAMPRIDINE
     Indication: PRODUCT USED FOR UNKNOWN INDICATION
     Route: 065
  2. OCREVUS [Suspect]
     Active Substance: OCRELIZUMAB
     Indication: PRIMARY PROGRESSIVE MULTIPLE SCLEROSIS
     Route: 042
     Dates: start: 20181024
  3. BACLOFEN. [Suspect]
     Active Substance: BACLOFEN
     Indication: PRODUCT USED FOR UNKNOWN INDICATION
     Route: 065
  4. RIVOTRIL [Concomitant]
     Active Substance: CLONAZEPAM

REACTIONS (2)
  - Hypotonia [Recovered/Resolved]
  - Nasopharyngitis [Not Recovered/Not Resolved]

NARRATIVE: CASE EVENT DATE: 20181109
